FAERS Safety Report 5645316-6 (Version None)
Quarter: 2008Q1

REPORT INFORMATION
  Report Type: 
  Country: None (occurrence: None)
  Receive Date: 20080229
  Receipt Date: 20080228
  Transmission Date: 20080703
  Serious: Yes (Death, Hospitalization, Other)
  Sender: FDA-Public Use
  Company Number: B0459528A

PATIENT
  Age: 54 Year
  Sex: Male
  Weight: 56 kg

DRUGS (36)
  1. ALKERAN [Suspect]
     Indication: CORD BLOOD TRANSPLANT THERAPY
     Route: 042
     Dates: start: 20060529, end: 20060529
  2. FLUDARABINE PHOSPHATE [Suspect]
     Indication: CORD BLOOD TRANSPLANT THERAPY
     Route: 042
     Dates: start: 20060524, end: 20060528
  3. PREDONINE [Suspect]
     Indication: IMMUNOSUPPRESSANT DRUG THERAPY
     Route: 065
     Dates: start: 20060711, end: 20060825
  4. SOLU-MEDROL [Suspect]
     Indication: IMMUNOSUPPRESSANT DRUG THERAPY
     Route: 042
     Dates: start: 20060708, end: 20060813
  5. CIPROFLOXACIN [Suspect]
     Route: 048
     Dates: start: 20060519, end: 20060608
  6. GASTER D [Suspect]
     Route: 048
     Dates: start: 20060519, end: 20060622
  7. DIFLUCAN [Suspect]
     Route: 048
     Dates: start: 20060519, end: 20060622
  8. ZOVIRAX [Suspect]
     Route: 048
     Dates: start: 20060524, end: 20060703
  9. FUROSEMIDE [Suspect]
     Route: 042
     Dates: start: 20060530, end: 20060609
  10. SODIUM CHLORIDE INJ [Suspect]
     Route: 048
     Dates: start: 20060624, end: 20060708
  11. SANDIMMUNE [Suspect]
     Indication: IMMUNOSUPPRESSANT DRUG THERAPY
     Dosage: 165MG PER DAY
     Dates: start: 20060530, end: 20060801
  12. HYDROCORTONE [Suspect]
     Indication: DRUG USE FOR UNKNOWN INDICATION
     Dosage: 100MG PER DAY
     Route: 042
     Dates: start: 20060613, end: 20060618
  13. GLUCOSE [Suspect]
     Indication: DRUG USE FOR UNKNOWN INDICATION
     Dosage: 200ML PER DAY
     Route: 042
     Dates: start: 20060627, end: 20060628
  14. FULCALIQ [Suspect]
     Indication: DRUG USE FOR UNKNOWN INDICATION
     Dosage: 903ML PER DAY
     Route: 042
     Dates: start: 20060627, end: 20060628
  15. ASPARA K [Suspect]
     Indication: DRUG USE FOR UNKNOWN INDICATION
     Dosage: 20ML PER DAY
     Route: 042
  16. SODIUM CHLORIDE INJ [Suspect]
     Indication: DRUG USE FOR UNKNOWN INDICATION
     Dosage: 40ML PER DAY
     Route: 042
  17. UNKNOWN DRUG [Suspect]
     Indication: DRUG USE FOR UNKNOWN INDICATION
     Dosage: 1000ML PER DAY
     Route: 042
  18. GRAN [Concomitant]
     Dates: start: 20060601, end: 20060705
  19. CYCLOSPORINE [Concomitant]
     Indication: IMMUNOSUPPRESSANT DRUG THERAPY
     Route: 065
     Dates: start: 20060530, end: 20060801
  20. METHOTREXATE [Concomitant]
     Indication: IMMUNOSUPPRESSANT DRUG THERAPY
     Route: 065
     Dates: start: 20060531, end: 20060606
  21. LENDORMIN [Concomitant]
     Route: 048
     Dates: start: 20060519, end: 20060622
  22. BAKTAR [Concomitant]
     Route: 048
     Dates: start: 20060519, end: 20060530
  23. URSO 250 [Concomitant]
     Route: 048
     Dates: start: 20060519, end: 20060622
  24. PRIMPERAN INJ [Concomitant]
     Dates: start: 20060524, end: 20060528
  25. KYTRIL [Concomitant]
     Route: 042
     Dates: start: 20060529, end: 20060529
  26. MAGNESIUM SULFATE [Concomitant]
     Dates: start: 20060531, end: 20060801
  27. HAPTOGLOBIN [Concomitant]
     Route: 042
     Dates: start: 20060531, end: 20060531
  28. SELBEX [Concomitant]
     Route: 048
     Dates: start: 20060519, end: 20060623
  29. NEUART [Concomitant]
     Route: 042
     Dates: start: 20060605, end: 20060605
  30. MEROPEN [Concomitant]
     Route: 042
     Dates: start: 20060614, end: 20060617
  31. UNKNOWN DRUG [Concomitant]
     Route: 042
     Dates: start: 20060618, end: 20060626
  32. VANCOMYCIN [Concomitant]
     Route: 042
     Dates: start: 20060617, end: 20060626
  33. DIAZEPAM [Concomitant]
     Dates: start: 20060623, end: 20060623
  34. FAMOTIDINE [Concomitant]
     Dates: start: 20060623, end: 20060825
  35. HANP [Concomitant]
     Route: 042
     Dates: start: 20060709, end: 20060712
  36. INOVAN [Concomitant]
     Route: 042
     Dates: start: 20060709, end: 20060712

REACTIONS (7)
  - C-REACTIVE PROTEIN INCREASED [None]
  - CARDIAC FAILURE [None]
  - CONVULSION [None]
  - HYPONATRAEMIA [None]
  - INAPPROPRIATE ANTIDIURETIC HORMONE SECRETION [None]
  - INTERSTITIAL LUNG DISEASE [None]
  - PNEUMOTHORAX [None]
